FAERS Safety Report 24769652 (Version 1)
Quarter: 2024Q4

REPORT INFORMATION
  Report Type: Spontaneous
  Country: DK (occurrence: DK)
  Receive Date: 20241224
  Receipt Date: 20241224
  Transmission Date: 20250114
  Serious: Yes (Hospitalization, Other)
  Sender: CIPLA
  Company Number: DK-DKMA-31003614

PATIENT

DRUGS (1)
  1. RIVAROXABAN [Suspect]
     Active Substance: RIVAROXABAN
     Indication: Atrial fibrillation
     Dosage: 20 MILLIGRAM, QD, CAPSULE HARD
     Route: 048
     Dates: start: 2017, end: 20241202

REACTIONS (5)
  - Hemiparesis [Unknown]
  - Speech disorder [Unknown]
  - Facial paresis [Unknown]
  - Muscular weakness [Unknown]
  - Haemorrhage intracranial [Not Recovered/Not Resolved]

NARRATIVE: CASE EVENT DATE: 20241202
